FAERS Safety Report 12099294 (Version 1)
Quarter: 2016Q1

REPORT INFORMATION
  Report Type: Spontaneous
  Country: US (occurrence: None)
  Receive Date: 20160219
  Receipt Date: 20160219
  Transmission Date: 20160526
  Serious: Yes (Hospitalization)
  Sender: FDA-Public Use
  Company Number: None

PATIENT
  Age: 11 Year
  Sex: Male
  Weight: 88.2 kg

DRUGS (6)
  1. DAUNORUBICIN [Suspect]
     Active Substance: DAUNORUBICIN
     Dates: end: 20160119
  2. ONCASPAR [Suspect]
     Active Substance: PEGASPARGASE
     Dates: end: 20160107
  3. VINCRISTINE SULFATE. [Suspect]
     Active Substance: VINCRISTINE SULFATE
     Dates: end: 20160119
  4. CYTARABINE. [Suspect]
     Active Substance: CYTARABINE
     Dates: end: 20160104
  5. PREDNISONE. [Suspect]
     Active Substance: PREDNISONE
     Dates: end: 20160131
  6. METHOTREXATE [Suspect]
     Active Substance: METHOTREXATE
     Dates: end: 20160119

REACTIONS (6)
  - Haemorrhagic cyst [None]
  - Pancreatic pseudocyst [None]
  - Acute hepatic failure [None]
  - Respiratory distress [None]
  - Hypotension [None]
  - Respiratory failure [None]

NARRATIVE: CASE EVENT DATE: 20160216
